FAERS Safety Report 7031324-X (Version None)
Quarter: 2010Q4

REPORT INFORMATION
  Report Type: 
  Country: None (occurrence: None)
  Receive Date: 20101006
  Receipt Date: 20101001
  Transmission Date: 20110411
  Serious: Yes (Other)
  Sender: FDA-Public Use
  Company Number: US-AMGEN-KDL427055

PATIENT
  Sex: Male
  Weight: 86.3 kg

DRUGS (12)
  1. ENBREL [Suspect]
     Indication: RHEUMATOID ARTHRITIS
     Route: 058
     Dates: start: 20090401
  2. GABAPENTIN [Concomitant]
  3. SIMVASTATIN [Concomitant]
  4. DIOVAN [Concomitant]
  5. ASPIRIN [Concomitant]
  6. PLAVIX [Concomitant]
  7. ALENDRONATE SODIUM [Concomitant]
  8. OMEPRAZOLE [Concomitant]
  9. FOLIC ACID [Concomitant]
  10. FISH OIL [Concomitant]
  11. COENZYME Q10 [Concomitant]
  12. ATENOLOL [Concomitant]

REACTIONS (11)
  - CATARACT [None]
  - COUGH [None]
  - HAEMATOCRIT ABNORMAL [None]
  - HAEMOGLOBIN ABNORMAL [None]
  - HYPERSOMNIA [None]
  - MACULAR DEGENERATION [None]
  - MALAISE [None]
  - MEAN CELL VOLUME ABNORMAL [None]
  - MEAN PLATELET VOLUME ABNORMAL [None]
  - RED BLOOD CELL COUNT ABNORMAL [None]
  - WEIGHT DECREASED [None]
